FAERS Safety Report 8172421-5 (Version None)
Quarter: 2012Q1

REPORT INFORMATION
  Report Type: 
  Country: None (occurrence: None)
  Receive Date: 20120224
  Receipt Date: 20120224
  Transmission Date: 20120608
  Serious: Yes (Hospitalization)
  Sender: FDA-Public Use
  Company Number: None

PATIENT
  Sex: Female

DRUGS (2)
  1. J+J BABY LOTION [Suspect]
     Indication: DRY SKIN
     Dosage: TOPICAL
     Route: 061
  2. JBABY BABY BATH UNSPECIFIED [Suspect]
     Indication: REMOVAL OF INERT MATTER FROM SKIN OR SUBCUTANEOUS TISSUE
     Dosage: TOPICAL
     Route: 061

REACTIONS (1)
  - RASH GENERALISED [None]
